FAERS Safety Report 4501209-9 (Version None)
Quarter: 2004Q3

REPORT INFORMATION
  Report Type: 
  Country: None (occurrence: None)
  Receive Date: 20040927
  Receipt Date: 20040813
  Transmission Date: 20050211
  Serious: No
  Sender: FDA-Public Use
  Company Number: USA040875561

PATIENT
  Age: 12 Year

DRUGS (1)
  1. STRATTERA [Suspect]

REACTIONS (1)
  - EMOTIONAL DISTRESS [None]
